FAERS Safety Report 15328748 (Version 2)
Quarter: 2018Q3

REPORT INFORMATION
  Report Type: Spontaneous
  Country: US (occurrence: US)
  Receive Date: 20180829
  Receipt Date: 20180911
  Transmission Date: 20181010
  Serious: No
  Sender: FDA-Public Use
  Company Number: US-TEVA-2018-US-949583

PATIENT
  Age: 64 Year
  Sex: Male

DRUGS (1)
  1. TEMAZEPAM. [Suspect]
     Active Substance: TEMAZEPAM
     Indication: SLEEP APNOEA SYNDROME
     Route: 065
     Dates: start: 20180817

REACTIONS (2)
  - Product physical issue [Unknown]
  - Insomnia [Unknown]

NARRATIVE: CASE EVENT DATE: 20180817
